FAERS Safety Report 5834238-3 (Version None)
Quarter: 2008Q3

REPORT INFORMATION
  Report Type: 
  Country: None (occurrence: None)
  Receive Date: 20080805
  Receipt Date: 20080722
  Transmission Date: 20090109
  Serious: Yes (Hospitalization, Other)
  Sender: FDA-Public Use
  Company Number: PHBS2008FR05247

PATIENT
  Age: 26 Year
  Sex: Male

DRUGS (14)
  1. SANDOSTATIN [Suspect]
     Indication: PITUITARY TUMOUR BENIGN
     Dosage: 200 UG, DAY
     Route: 058
     Dates: start: 19911001
  2. SANDOSTATIN [Suspect]
     Dosage: 150 UG, DAY
     Route: 058
     Dates: start: 19920901
  3. OCTREOTIDE ACETATE [Suspect]
     Indication: PITUITARY TUMOUR BENIGN
     Dosage: 20 MG, QMO
     Dates: start: 19990301, end: 19990601
  4. OCTREOTIDE ACETATE [Suspect]
     Dosage: 30 MG, QMO
     Dates: start: 19990601, end: 20020101
  5. OCTREOTIDE ACETATE [Suspect]
     Dosage: 150 UG/DAY
     Route: 058
     Dates: end: 20050601
  6. RADIOTHERAPY [Concomitant]
     Dosage: UNK
     Dates: start: 19931001
  7. PROPRANOLOL [Concomitant]
     Dosage: UNK
     Dates: start: 19910101
  8. BROMOCRIPTINE MESYLATE [Concomitant]
     Dosage: UNK
  9. SOMATULINE LA [Concomitant]
     Dosage: UNK
     Dates: start: 19950801, end: 19950101
  10. DOSTINEX [Concomitant]
     Dosage: 0.5 MG/WEEK
     Dates: start: 20021001
  11. DOSTINEX [Concomitant]
     Dosage: 1 MG/WEEK
     Dates: start: 20031101
  12. DOSTINEX [Concomitant]
     Dosage: 1.5 MG/WEEK
     Dates: start: 20031201
  13. LANREOTIDE [Concomitant]
     Dosage: 90 MG, QMO
     Dates: start: 20050601, end: 20051001
  14. LANREOTIDE [Concomitant]
     Dosage: 120 MG, QMO
     Dates: start: 20051001

REACTIONS (5)
  - CHOLECYSTECTOMY [None]
  - CHOLELITHIASIS [None]
  - DRUG RESISTANCE [None]
  - HEMIANOPIA [None]
  - VISUAL FIELD DEFECT [None]
